FAERS Safety Report 9149646 (Version 1)
Quarter: 2013Q1

REPORT INFORMATION
  Report Type: Spontaneous
  Country: ES (occurrence: ES)
  Receive Date: 20130308
  Receipt Date: 20130308
  Transmission Date: 20140127
  Serious: Yes (Hospitalization, Other)
  Sender: FDA-Public Use
  Company Number: ES-009507513-1204ESP00004

PATIENT
  Age: 74 Year
  Sex: Male

DRUGS (7)
  1. TIENAM [Suspect]
     Indication: PNEUMONIA
     Dosage: 250-250
     Dates: start: 20080214, end: 20080312
  2. LEVOFLOXACIN [Concomitant]
     Indication: PYREXIA
     Dosage: 250 MG, Q12H
     Dates: start: 200801, end: 20080214
  3. TIGECYCLINE [Suspect]
     Indication: KLEBSIELLA INFECTION
     Dosage: 100 MG, ONCE
     Dates: start: 20080305, end: 20080305
  4. TIGECYCLINE [Suspect]
     Indication: URINARY TRACT INFECTION
     Dosage: 50 MG, Q12H
     Dates: start: 20080306, end: 20080312
  5. ERTAPENEM SODIUM [Suspect]
     Indication: KLEBSIELLA INFECTION
     Dosage: 1 G, QD
     Route: 041
     Dates: start: 20080526
  6. ERTAPENEM SODIUM [Suspect]
     Indication: URINARY TRACT INFECTION
  7. CEFAZOLIN [Concomitant]
     Indication: ANTIBIOTIC PROPHYLAXIS
     Dosage: 1 G, ONCE
     Dates: start: 200801, end: 200801

REACTIONS (4)
  - Urinary tract infection [Unknown]
  - Kidney transplant rejection [Not Recovered/Not Resolved]
  - Pathogen resistance [Recovered/Resolved]
  - Klebsiella bacteraemia [Unknown]
